FAERS Safety Report 9961871 (Version 2)
Quarter: 2014Q1

REPORT INFORMATION
  Report Type: Report from Study
  Country: US (occurrence: US)
  Receive Date: 20140305
  Receipt Date: 20140305
  Transmission Date: 20141002
  Serious: No
  Sender: FDA-Public Use
  Company Number: US-ABBVIE-12P-163-1023006-00

PATIENT
  Age: 58 Year
  Sex: Female

DRUGS (24)
  1. HUMIRA [Suspect]
     Indication: PSORIATIC ARTHROPATHY
  2. LASIX [Suspect]
     Indication: HYPERTENSION
  3. VIT B12 [Concomitant]
     Indication: PRODUCT USED FOR UNKNOWN INDICATION
     Route: 060
  4. KLONOPIN [Concomitant]
     Indication: ANXIETY
  5. AMITRIPTYLINE [Concomitant]
     Indication: ANXIETY
  6. FLEXERIL [Concomitant]
     Indication: PAIN
     Dosage: 10 MG 1 TAB AT BEDTIME AS NEEDED
  7. LUNESTA [Concomitant]
     Indication: INSOMNIA
     Dosage: AT BEDTIME
  8. ATENOLOL [Concomitant]
     Indication: HYPERTENSION
  9. HYDROCODONE W/ACETAMINOPHEN [Concomitant]
     Indication: PAIN
     Dosage: 5/500 MG
  10. DICLOFENAC [Concomitant]
     Indication: INFLAMMATION
  11. ALBUTEROL [Concomitant]
     Indication: PRODUCT USED FOR UNKNOWN INDICATION
     Route: 055
  12. UNKNOWN NEBULIZER [Concomitant]
     Indication: ASTHMA
  13. SPIRANOLACTONE [Concomitant]
     Indication: PRODUCT USED FOR UNKNOWN INDICATION
  14. METHOTREXATE [Concomitant]
     Indication: PRODUCT USED FOR UNKNOWN INDICATION
     Dosage: 6 TABS, ONCE WEEKLY
  15. DULERA [Concomitant]
     Indication: PRODUCT USED FOR UNKNOWN INDICATION
     Dosage: 2 PUFFS, TWICE DAILY
  16. FOLIC ACID [Concomitant]
     Indication: PRODUCT USED FOR UNKNOWN INDICATION
  17. REQUIP [Concomitant]
     Indication: PRODUCT USED FOR UNKNOWN INDICATION
  18. LODOSYN [Concomitant]
     Indication: PRODUCT USED FOR UNKNOWN INDICATION
  19. MONTELUKAST [Concomitant]
     Indication: PRODUCT USED FOR UNKNOWN INDICATION
  20. PREMARIN [Concomitant]
     Indication: PRODUCT USED FOR UNKNOWN INDICATION
  21. CARBODOPA/LEVADOPA [Concomitant]
     Indication: PRODUCT USED FOR UNKNOWN INDICATION
     Dosage: 25/100, 3 TIMES DAILY
  22. CYCLOBENZAPRINE [Concomitant]
     Indication: PRODUCT USED FOR UNKNOWN INDICATION
     Dosage: AS NEEDED
  23. HYDROCODONE [Concomitant]
     Indication: PRODUCT USED FOR UNKNOWN INDICATION
     Dosage: 5/500, 4 TIMES DAILY, AS NEEDED, MAX OF 2 A DAY
  24. CLONAZEPAM [Concomitant]
     Indication: PRODUCT USED FOR UNKNOWN INDICATION
     Dosage: AS NEEDED

REACTIONS (8)
  - Local swelling [Not Recovered/Not Resolved]
  - Rash [Recovered/Resolved]
  - Joint swelling [Not Recovered/Not Resolved]
  - Pain [Not Recovered/Not Resolved]
  - Laryngitis [Not Recovered/Not Resolved]
  - Rash [Unknown]
  - Erythema [Unknown]
  - Contusion [Unknown]
